FAERS Safety Report 7280319-X (Version None)
Quarter: 2011Q1

REPORT INFORMATION
  Report Type: 
  Country: None (occurrence: None)
  Receive Date: 20110208
  Receipt Date: 20110131
  Transmission Date: 20110831
  Serious: Yes (Other)
  Sender: FDA-Public Use
  Company Number: PT-AMGEN-PRTSP2011006994

PATIENT
  Age: 57 Year
  Sex: Female
  Weight: 68 kg

DRUGS (4)
  1. SALOFALK                           /00747601/ [Concomitant]
     Indication: CROHN'S DISEASE
     Dosage: 500 MG, UNK
  2. ENBREL [Suspect]
     Indication: RHEUMATOID ARTHRITIS
     Dosage: 50 MG, WEEKLY
     Route: 058
     Dates: start: 20101228
  3. ATARAX [Concomitant]
     Indication: CHOLANGITIS SCLEROSING
     Dosage: UNK
  4. RISIDON [Concomitant]
     Indication: TYPE 2 DIABETES MELLITUS
     Dosage: 1000 MG, UNK

REACTIONS (5)
  - INJECTION SITE MACULE [None]
  - SKIN REACTION [None]
  - PRURITUS [None]
  - HYPERSENSITIVITY [None]
  - NO THERAPEUTIC RESPONSE [None]
